FAERS Safety Report 16894834 (Version 2)
Quarter: 2019Q4

REPORT INFORMATION
  Report Type: Spontaneous
  Country: KR (occurrence: KR)
  Receive Date: 20191008
  Receipt Date: 20191018
  Transmission Date: 20200122
  Serious: Yes (Other)
  Sender: FDA-Public Use
  Company Number: KR-AMERICAN REGENT INC-2019002163

PATIENT
  Sex: Female

DRUGS (1)
  1. FERINJECT [Suspect]
     Active Substance: FERRIC CARBOXYMALTOSE
     Indication: PREOPERATIVE CARE
     Dosage: 1 VIAL
     Route: 042

REACTIONS (2)
  - Acquired haemophilia [Recovered/Resolved]
  - Product use in unapproved indication [Unknown]
